FAERS Safety Report 21053276 (Version 8)
Quarter: 2023Q1

REPORT INFORMATION
  Report Type: Report from Study
  Country: TW (occurrence: TW)
  Receive Date: 20220707
  Receipt Date: 20230113
  Transmission Date: 20230418
  Serious: Yes (Hospitalization)
  Sender: FDA-Public Use
  Company Number: TW-DSRSG-DS8201AU206_88042001_000002

PATIENT
  Age: 7 Decade
  Sex: Female
  Weight: 58.7 kg

DRUGS (46)
  1. FAM-TRASTUZUMAB DERUXTECAN-NXKI [Suspect]
     Active Substance: FAM-TRASTUZUMAB DERUXTECAN-NXKI
     Indication: HER2 mutant non-small cell lung cancer
     Dosage: 5.4 MG/KG, ONCE EVERY 3 WK
     Route: 042
     Dates: start: 20210908, end: 20210908
  2. FAM-TRASTUZUMAB DERUXTECAN-NXKI [Suspect]
     Active Substance: FAM-TRASTUZUMAB DERUXTECAN-NXKI
     Dosage: 5.4 MG/KG, ONCE EVERY 3 WK
     Route: 042
     Dates: start: 20210930, end: 20210930
  3. FAM-TRASTUZUMAB DERUXTECAN-NXKI [Suspect]
     Active Substance: FAM-TRASTUZUMAB DERUXTECAN-NXKI
     Dosage: 5.4 MG/KG, ONCE EVERY 3 WK
     Route: 042
     Dates: start: 20211021, end: 20211021
  4. FAM-TRASTUZUMAB DERUXTECAN-NXKI [Suspect]
     Active Substance: FAM-TRASTUZUMAB DERUXTECAN-NXKI
     Dosage: 5.4 MG/KG, ONCE EVERY 3 WK
     Route: 042
     Dates: start: 20211111, end: 20211111
  5. FAM-TRASTUZUMAB DERUXTECAN-NXKI [Suspect]
     Active Substance: FAM-TRASTUZUMAB DERUXTECAN-NXKI
     Dosage: 5.4 MG/KG, ONCE EVERY 3 WK
     Route: 042
     Dates: start: 20211202, end: 20211202
  6. FAM-TRASTUZUMAB DERUXTECAN-NXKI [Suspect]
     Active Substance: FAM-TRASTUZUMAB DERUXTECAN-NXKI
     Dosage: 5.4 MG/KG, ONCE EVERY 3 WK
     Route: 042
     Dates: start: 20211223, end: 20211223
  7. FAM-TRASTUZUMAB DERUXTECAN-NXKI [Suspect]
     Active Substance: FAM-TRASTUZUMAB DERUXTECAN-NXKI
     Dosage: 5.4 MG/KG, ONCE EVERY 3 WK
     Route: 042
     Dates: start: 20220118, end: 20220118
  8. FAM-TRASTUZUMAB DERUXTECAN-NXKI [Suspect]
     Active Substance: FAM-TRASTUZUMAB DERUXTECAN-NXKI
     Dosage: 5.4 MG/KG, ONCE EVERY 3 WK
     Route: 042
     Dates: start: 20220208, end: 20220208
  9. FAM-TRASTUZUMAB DERUXTECAN-NXKI [Suspect]
     Active Substance: FAM-TRASTUZUMAB DERUXTECAN-NXKI
     Dosage: 5.4 MG/KG, ONCE EVERY 3 WK
     Route: 042
     Dates: start: 20220308, end: 20220308
  10. FAM-TRASTUZUMAB DERUXTECAN-NXKI [Suspect]
     Active Substance: FAM-TRASTUZUMAB DERUXTECAN-NXKI
     Dosage: 5.4 MG/KG, ONCE EVERY 3 WK
     Route: 042
     Dates: start: 20220331, end: 20220331
  11. FAM-TRASTUZUMAB DERUXTECAN-NXKI [Suspect]
     Active Substance: FAM-TRASTUZUMAB DERUXTECAN-NXKI
     Dosage: 4.4 MG/KG, ONCE EVERY 3 WK
     Route: 042
     Dates: start: 20220428, end: 20220428
  12. FAM-TRASTUZUMAB DERUXTECAN-NXKI [Suspect]
     Active Substance: FAM-TRASTUZUMAB DERUXTECAN-NXKI
     Dosage: 4.4 MG/KG, ONCE EVERY 3 WK
     Route: 042
     Dates: start: 20220519, end: 20220519
  13. FAM-TRASTUZUMAB DERUXTECAN-NXKI [Suspect]
     Active Substance: FAM-TRASTUZUMAB DERUXTECAN-NXKI
     Dosage: 4.4 MG/KG, ONCE EVERY 3 WK
     Route: 042
     Dates: start: 20220614, end: 20220614
  14. SUZOLE [Concomitant]
     Indication: Conjunctivitis
     Dosage: 1 DROP, QID
     Dates: start: 20210818
  15. CARBOMER [Concomitant]
     Active Substance: CARBOMER
     Indication: Dry eye
     Dosage: 1 DROP, QD
     Dates: start: 20210818
  16. FOXONE [Concomitant]
     Indication: Conjunctivitis
     Dosage: 1 DROP, BID
     Dates: start: 20210818
  17. PIRENOXINE [Concomitant]
     Active Substance: PIRENOXINE
     Indication: Cataract
     Dosage: 1 DROP, BID
     Dates: start: 20211122
  18. KEPPRA [Concomitant]
     Active Substance: LEVETIRACETAM
     Indication: Dizziness
     Dosage: 1 TABLET, BID
     Route: 048
     Dates: start: 20211202, end: 20220705
  19. VALPROATE SODIUM [Concomitant]
     Active Substance: VALPROATE SODIUM
     Indication: Dizziness
     Dosage: 1 TABLET, QD
     Route: 048
     Dates: start: 20211223, end: 20220208
  20. VALPROATE SODIUM [Concomitant]
     Active Substance: VALPROATE SODIUM
     Dosage: 1 TABLET, QD
     Route: 048
     Dates: start: 20220301, end: 20220606
  21. VALPROATE SODIUM [Concomitant]
     Active Substance: VALPROATE SODIUM
     Dosage: 1 TABLET, BID
     Route: 048
     Dates: start: 20220607
  22. CALCIUM CARBONATE [Concomitant]
     Active Substance: CALCIUM CARBONATE
     Indication: Muscle spasms
     Dosage: 1 TABLET, BID
     Route: 048
     Dates: start: 20220308
  23. CHLORPHENIRAMINE [Concomitant]
     Active Substance: CHLORPHENIRAMINE
     Indication: Allergy prophylaxis
     Dosage: 1 AMPULE, SINGLE
     Route: 042
     Dates: start: 20211202, end: 20211202
  24. CHLORPHENIRAMINE [Concomitant]
     Active Substance: CHLORPHENIRAMINE
     Indication: Anaemia
     Dosage: 1 AMPULE, SINGLE
     Route: 042
     Dates: start: 20220408, end: 20220408
  25. CHLORPHENIRAMINE [Concomitant]
     Active Substance: CHLORPHENIRAMINE
     Indication: Chills
     Dosage: 1 AMPULE, SINGLE
     Route: 042
     Dates: start: 20220413, end: 20220413
  26. CHLORPHENIRAMINE [Concomitant]
     Active Substance: CHLORPHENIRAMINE
     Indication: Platelet count decreased
     Dosage: 1 AMPULE, SINGLE
     Route: 042
     Dates: start: 20220607, end: 20220607
  27. SOLU-CORTEF [Concomitant]
     Active Substance: HYDROCORTISONE SODIUM SUCCINATE
     Indication: Anaemia
     Dosage: 2 VIAL, SINGLE
     Route: 042
     Dates: start: 20220111, end: 20220111
  28. SOLU-CORTEF [Concomitant]
     Active Substance: HYDROCORTISONE SODIUM SUCCINATE
     Dosage: 1 VIAL, SINGLE
     Route: 042
     Dates: start: 20220408, end: 20220408
  29. SOLU-CORTEF [Concomitant]
     Active Substance: HYDROCORTISONE SODIUM SUCCINATE
     Dosage: 2 VIAL, SINGLE
     Route: 042
     Dates: start: 20220607, end: 20220607
  30. HUMAN RED BLOOD CELL [Concomitant]
     Active Substance: HUMAN RED BLOOD CELL
     Indication: Anaemia
     Dosage: 2 U, SINGLE
     Route: 042
     Dates: start: 20220111, end: 20220111
  31. HUMAN RED BLOOD CELL [Concomitant]
     Active Substance: HUMAN RED BLOOD CELL
     Dosage: 2 U, SINGLE
     Route: 042
     Dates: start: 20220301, end: 20220301
  32. HUMAN RED BLOOD CELL [Concomitant]
     Active Substance: HUMAN RED BLOOD CELL
     Dosage: 2 U, SINGLE
     Route: 042
     Dates: start: 20220408, end: 20220408
  33. HUMAN RED BLOOD CELL [Concomitant]
     Active Substance: HUMAN RED BLOOD CELL
     Dosage: 2 U, SINGLE
     Route: 042
     Dates: start: 20220607, end: 20220607
  34. HUMAN RED BLOOD CELL [Concomitant]
     Active Substance: HUMAN RED BLOOD CELL
     Dosage: 2 U, SINGLE
     Route: 042
     Dates: start: 20220617, end: 20220617
  35. B.M [Concomitant]
     Indication: Cough
     Dosage: 5 ML, AS NEEDED
     Route: 048
     Dates: start: 20210907, end: 20210916
  36. B.M [Concomitant]
     Dosage: 5 ML, TID
     Route: 048
     Dates: start: 20220614
  37. SOLU-CORTEF [Concomitant]
     Active Substance: HYDROCORTISONE SODIUM SUCCINATE
     Indication: Transfusion reaction
     Dosage: 100 MG, SINGLE
     Route: 042
     Dates: start: 20220414, end: 20220414
  38. SOLU-CORTEF [Concomitant]
     Active Substance: HYDROCORTISONE SODIUM SUCCINATE
     Indication: Prophylaxis
     Dosage: 100 MG, SINGLE
     Route: 042
     Dates: start: 20220617, end: 20220617
  39. SOLU-CORTEF [Concomitant]
     Active Substance: HYDROCORTISONE SODIUM SUCCINATE
     Indication: Platelet count decreased
  40. CHLORPHENIRAMINE [Concomitant]
     Active Substance: CHLORPHENIRAMINE
     Indication: Allergy prophylaxis
     Dosage: 5 MG, SINGLE
     Route: 042
     Dates: start: 20220617, end: 20220617
  41. PANTOPRAZOLE [Concomitant]
     Active Substance: PANTOPRAZOLE
     Indication: Upper gastrointestinal haemorrhage
     Dosage: 40 MG, QD
     Route: 042
     Dates: start: 20220617, end: 20220617
  42. PANTOPRAZOLE [Concomitant]
     Active Substance: PANTOPRAZOLE
     Dosage: 40 MG, QD
     Route: 042
     Dates: start: 20220621, end: 20220622
  43. PRIMPERAN [Concomitant]
     Active Substance: METOCLOPRAMIDE HYDROCHLORIDE
     Indication: Upper gastrointestinal haemorrhage
     Dosage: 10 MG, SINGLE
     Route: 042
     Dates: start: 20220617, end: 20220617
  44. MORIAMIN SN [Concomitant]
     Indication: Decreased appetite
     Dosage: 1 BOTTLE, SINGLE
     Route: 042
     Dates: start: 20220617, end: 20220617
  45. MEGEST [MEGESTROL ACETATE] [Concomitant]
     Indication: Weight decreased
     Dosage: 10 ML, QD
     Route: 048
     Dates: start: 20210916, end: 20210926
  46. MEGEST [MEGESTROL ACETATE] [Concomitant]
     Indication: Decreased appetite
     Dosage: 10 ML, QD
     Route: 048
     Dates: start: 20220428, end: 20220519

REACTIONS (2)
  - Intracranial tumour haemorrhage [Recovered/Resolved]
  - Thrombocytopenia [Recovered/Resolved]

NARRATIVE: CASE EVENT DATE: 20220617
